FAERS Safety Report 9063226 (Version 3)
Quarter: 2013Q2

REPORT INFORMATION
  Report Type: Spontaneous
  Country: US (occurrence: US)
  Receive Date: 20130213
  Receipt Date: 20130402
  Transmission Date: 20140414
  Serious: Yes (Other)
  Sender: FDA-Public Use
  Company Number: US-GLAXOSMITHKLINE-A1011329A

PATIENT
  Age: 58 Year
  Sex: Female
  Weight: 51.4 kg

DRUGS (4)
  1. LAMICTAL XR [Suspect]
     Indication: EPILEPSY
     Dosage: 200MG PER DAY
     Route: 048
     Dates: start: 20101208
  2. LAMICTAL [Suspect]
     Indication: EPILEPSY
  3. MECLIZINE [Suspect]
     Indication: VERTIGO
  4. NO CONCURRENT MEDICATION [Concomitant]

REACTIONS (13)
  - Convulsion [Not Recovered/Not Resolved]
  - Overdose [Unknown]
  - Accidental overdose [Unknown]
  - Vertigo [Unknown]
  - Nausea [Recovering/Resolving]
  - Hypoaesthesia [Recovering/Resolving]
  - Chills [Recovering/Resolving]
  - Influenza like illness [Recovering/Resolving]
  - Somnolence [Recovering/Resolving]
  - Feeling abnormal [Recovering/Resolving]
  - Dry mouth [Recovering/Resolving]
  - Drug administration error [Unknown]
  - Dizziness [Unknown]
